FAERS Safety Report 8953163 (Version 1)
Quarter: 2012Q4

REPORT INFORMATION
  Report Type: 
  Country: GB (occurrence: GB)
  Receive Date: 20121205
  Receipt Date: 20121205
  Transmission Date: 20130627
  Serious: Yes (Other)
  Sender: FDA-Public Use
  Company Number: GB-ABBOTT-12P-167-1015815-00

PATIENT
  Age: 58 Year
  Sex: Male

DRUGS (1)
  1. EPILIM [Suspect]
     Indication: CONVULSION
     Dates: start: 2012

REACTIONS (4)
  - Balanitis [Not Recovered/Not Resolved]
  - Penile pain [Not Recovered/Not Resolved]
  - Quality of life decreased [Not Recovered/Not Resolved]
  - Sexual dysfunction [Not Recovered/Not Resolved]
